FAERS Safety Report 6125822-0 (Version None)
Quarter: 2009Q1

REPORT INFORMATION
  Report Type: 
  Country: None (occurrence: None)
  Receive Date: 20090320
  Receipt Date: 20090312
  Transmission Date: 20090719
  Serious: Yes (Other)
  Sender: FDA-Public Use
  Company Number: JP-ASTRAZENECA-2006AP04307

PATIENT
  Age: 40 Year
  Sex: Male
  Weight: 75 kg

DRUGS (5)
  1. ANAPEINE [Suspect]
     Indication: POSTOPERATIVE ANALGESIA
     Route: 008
     Dates: start: 20060829, end: 20060830
  2. XYLOCAINE [Concomitant]
     Indication: EPIDURAL ANAESTHESIA
     Route: 008
     Dates: start: 20060829
  3. DIPRIVAN [Concomitant]
     Indication: GENERAL ANAESTHESIA
     Dates: start: 20060829
  4. LEPETAN [Concomitant]
     Indication: POSTOPERATIVE ANALGESIA
     Route: 008
     Dates: start: 20060829, end: 20060830
  5. DROLEPTAN [Concomitant]
     Indication: POSTOPERATIVE ANALGESIA
     Route: 008
     Dates: start: 20060829, end: 20060830

REACTIONS (2)
  - DYSAESTHESIA [None]
  - MUSCULAR WEAKNESS [None]
